FAERS Safety Report 4283945-5 (Version None)
Quarter: 2004Q1

REPORT INFORMATION
  Report Type: 
  Country: None (occurrence: None)
  Receive Date: 20040115
  Receipt Date: 20030107
  Transmission Date: 20041129
  Serious: Yes (Other)
  Sender: FDA-Public Use
  Company Number: NSADSS2003001274

PATIENT
  Age: 55 Year
  Sex: Female
  Weight: 49.4421 kg

DRUGS (1)
  1. DOXIL [Suspect]
     Indication: OVARIAN CANCER
     Dosage: 1 IN 4 WEEK INTRAVENOUS DRIP
     Route: 041
     Dates: start: 20021101, end: 20030103

REACTIONS (2)
  - CONDITION AGGRAVATED [None]
  - PALMAR-PLANTAR ERYTHRODYSAESTHESIA SYNDROME [None]
